FAERS Safety Report 7752478-3 (Version None)
Quarter: 2011Q3

REPORT INFORMATION
  Report Type: 
  Country: None (occurrence: None)
  Receive Date: 20110915
  Receipt Date: 20110913
  Transmission Date: 20111222
  Serious: Yes (Other)
  Sender: FDA-Public Use
  Company Number: PHEH2011US02689

PATIENT

DRUGS (5)
  1. VICODIN [Concomitant]
     Indication: PAIN
     Dosage: UNK UKN, UNK
  2. WELLBUTRIN [Concomitant]
     Indication: DEPRESSION
     Dosage: UNK UKN, UNK
  3. RECLAST [Suspect]
     Indication: OSTEOPOROSIS
     Dosage: 5 MG YEARLY
     Route: 042
     Dates: start: 20110805
  4. DIOVAN HCT [Concomitant]
     Indication: HYPERTENSION
     Dosage: UNK UKN, UNK
  5. ZOLOFT [Concomitant]
     Indication: DEPRESSION
     Dosage: 50 MG

REACTIONS (3)
  - SYNOVITIS [None]
  - ARTHRALGIA [None]
  - MUSCULOSKELETAL PAIN [None]
